FAERS Safety Report 5892163-6 (Version None)
Quarter: 2008Q3

REPORT INFORMATION
  Report Type: 
  Country: None (occurrence: None)
  Receive Date: 20080918
  Receipt Date: 20080905
  Transmission Date: 20090109
  Serious: Yes (Other)
  Sender: FDA-Public Use
  Company Number: 2008-03333

PATIENT
  Age: 49 Year
  Sex: Male
  Weight: 65 kg

DRUGS (6)
  1. VELCADE [Suspect]
     Indication: MULTIPLE MYELOMA
     Dosage: 1.3MG/M2, INTRAVENOUS
     Route: 042
     Dates: start: 20080805, end: 20080808
  2. DOXORUBICIN HCL [Concomitant]
  3. FORTECORTIN [Concomitant]
  4. GRANISETRON HCL [Concomitant]
  5. ISOPTIN [Concomitant]
  6. KALIUM (POTASSIUM CHLORIDE) [Concomitant]

REACTIONS (2)
  - SKIN LESION [None]
  - SKIN NECROSIS [None]
